FAERS Safety Report 6302095-7 (Version None)
Quarter: 2009Q3

REPORT INFORMATION
  Report Type: 
  Country: None (occurrence: None)
  Receive Date: 20090807
  Receipt Date: 20090727
  Transmission Date: 20100115
  Serious: Yes (Other)
  Sender: FDA-Public Use
  Company Number: DE-GENENTECH-272227

PATIENT
  Sex: Female

DRUGS (2)
  1. RANIBIZUMAB [Suspect]
     Indication: MACULAR DEGENERATION
     Dosage: UNK
     Route: 031
     Dates: start: 20080813, end: 20081020
  2. SUPPLEMENT NOS [Concomitant]
     Indication: DRUG USE FOR UNKNOWN INDICATION

REACTIONS (5)
  - CONDITION AGGRAVATED [None]
  - METAMORPHOPSIA [None]
  - RETINAL PIGMENT EPITHELIAL TEAR [None]
  - VISION BLURRED [None]
  - VISUAL ACUITY REDUCED [None]
